FAERS Safety Report 9178718 (Version 2)
Quarter: 2013Q2

REPORT INFORMATION
  Report Type: Spontaneous
  Country: US (occurrence: US)
  Receive Date: 20130321
  Receipt Date: 20130611
  Transmission Date: 20140414
  Serious: Yes (Other)
  Sender: FDA-Public Use
  Company Number: US-ROCHE-791954

PATIENT
  Age: 17 Year
  Sex: Female

DRUGS (4)
  1. ACCUTANE [Suspect]
     Indication: ACNE
     Route: 065
     Dates: start: 2000, end: 2001
  2. ACCUTANE [Suspect]
     Route: 065
     Dates: start: 200102, end: 20011008
  3. ORTHO TRI-CYCLEN [Concomitant]
  4. ALLEGRA [Concomitant]

REACTIONS (10)
  - Colitis ulcerative [Unknown]
  - Inflammatory bowel disease [Unknown]
  - Emotional distress [Not Recovered/Not Resolved]
  - Depression [Unknown]
  - Irritable bowel syndrome [Unknown]
  - Ingrowing nail [Unknown]
  - Sunburn [Unknown]
  - Back pain [Unknown]
  - Cough [Unknown]
  - Eye swelling [Unknown]
